FAERS Safety Report 12267481 (Version 8)
Quarter: 2018Q4

REPORT INFORMATION
  Report Type: Spontaneous
  Country: FR (occurrence: FR)
  Receive Date: 20160414
  Receipt Date: 20181207
  Transmission Date: 20190204
  Serious: Yes (Death)
  Sender: FDA-Public Use
  Company Number: FR-SUN PHARMACEUTICAL INDUSTRIES LTD-2016R1-114837

PATIENT
  Age: 51 Year
  Sex: Female

DRUGS (13)
  1. DEXAMETHASONE. [Suspect]
     Active Substance: DEXAMETHASONE
     Indication: PLASMA CELL MYELOMA
     Dosage: PART OF REGIMEN (BORTEZOMIB+THALIDOMIDE+DEXAMETHASONE), 5TH CYCLE: CYCLICAL
     Route: 065
  2. DEXAMETHASONE. [Suspect]
     Active Substance: DEXAMETHASONE
     Indication: PLASMA CELL MYELOMA
     Dosage: PART OF REGIMEN (BORTEZOMIB+THALIDOMIDE+DEXAMETHASONE), 1-4 CYCLES: CYCLICAL
     Route: 065
  3. DEXAMETHASONE. [Suspect]
     Active Substance: DEXAMETHASONE
     Indication: PLASMA CELL MYELOMA
     Dosage: 40 MG/D, DAYS 1-4; DAYS 15-18, AS A PART OF LENALIDOMIDE+DEXAMETHASONE
     Route: 065
  4. METHOTREXATE. [Concomitant]
     Active Substance: METHOTREXATE
     Indication: PLASMA CELL MYELOMA
     Dosage: UNK
     Route: 037
  5. DEXAMETHASONE. [Suspect]
     Active Substance: DEXAMETHASONE
     Indication: PLASMA CELL MYELOMA
     Dosage: PART OF REGIMEN (BORTEZOMIB+THALIDOMIDE+DEXAMETHASONE), 1-4 CYCLES: CYCLICAL
     Route: 065
  6. ADRIAMYCIN [Suspect]
     Active Substance: DOXORUBICIN HYDROCHLORIDE
     Indication: PLASMA CELL MYELOMA
     Dosage: PART OF REGIMEN (VINRISTINE+DOXORUBUCIN+DEXAMETHASONE) CYCLICAL
     Route: 065
  7. CYTARABINE. [Concomitant]
     Active Substance: CYTARABINE
     Indication: PLASMA CELL MYELOMA
     Dosage: UNK
     Route: 037
  8. BORTEZOMIB. [Suspect]
     Active Substance: BORTEZOMIB
     Indication: PLASMA CELL MYELOMA
     Dosage: PART OF REGIMEN (BORTEZOMIB+THALIDOMIDE+DEXAMETHASONE): CYCLICAL
     Route: 065
  9. LENALIDOMIDE [Suspect]
     Active Substance: LENALIDOMIDE
     Indication: PLASMA CELL MYELOMA
     Dosage: 25 MG PER DAY, 1-21 DAYS
     Route: 065
  10. THALIDOMIDE [Suspect]
     Active Substance: THALIDOMIDE
     Indication: PLASMA CELL MYELOMA
     Dosage: PART OF REGIMEN (BORTEZOMIB+THALIDOMIDE+DEXAMETHASONE); CYCLICAL
     Route: 065
  11. HYDROCORTISONE. [Concomitant]
     Active Substance: HYDROCORTISONE
     Indication: PLASMA CELL MYELOMA
     Dosage: UNK
     Route: 037
  12. MELPHALAN. [Concomitant]
     Active Substance: MELPHALAN
     Indication: PRODUCT USED FOR UNKNOWN INDICATION
     Dosage: HIGH-DOSE
     Route: 065
  13. VINCRISTINE [Suspect]
     Active Substance: VINCRISTINE
     Indication: PLASMA CELL MYELOMA
     Dosage: PART OF REGIMEN (VINRISTINE+DOXORUBUCIN+DEXAMETHASONE) CYCLICAL
     Route: 065

REACTIONS (2)
  - Plasma cell myeloma recurrent [Fatal]
  - Drug ineffective [Fatal]
